FAERS Safety Report 16532328 (Version 2)
Quarter: 2019Q3

REPORT INFORMATION
  Report Type: Spontaneous
  Country: ES (occurrence: ES)
  Receive Date: 20190704
  Receipt Date: 20190705
  Transmission Date: 20191004
  Serious: Yes (Other)
  Sender: FDA-Public Use
  Company Number: ES-PFIZER INC-2019279781

PATIENT
  Age: 58 Year
  Sex: Female

DRUGS (4)
  1. MEROPENEM. [Suspect]
     Active Substance: MEROPENEM
     Dosage: 2 G, 3X/DAY (EVERY 8 HOURS)
     Route: 042
     Dates: start: 20190504, end: 20190507
  2. PANTOPRAZOLE [Suspect]
     Active Substance: PANTOPRAZOLE
     Dosage: 40 MILLIGRAM, QD
     Route: 042
     Dates: start: 20190429, end: 20190512
  3. PIPERACILLIN AND TAZOBACTAM [Suspect]
     Active Substance: PIPERACILLIN SODIUM\TAZOBACTAM SODIUM
     Dosage: 4 G, 4X/DAY (EVERY 6 HOURS)
     Route: 042
     Dates: start: 20190503, end: 20190504
  4. FUROSEMIDA GESFUR [Concomitant]
     Dosage: 20 MG, 3X/DAY (EVERY 8 HOURS)
     Route: 042
     Dates: start: 20190502, end: 20190503

REACTIONS (1)
  - Hepatitis [Recovered/Resolved]

NARRATIVE: CASE EVENT DATE: 20190505
